FAERS Safety Report 9076236 (Version 1)
Quarter: 2013Q1

REPORT INFORMATION
  Report Type: Report from Study
  Country: US (occurrence: US)
  Receive Date: 20130129
  Receipt Date: 20130129
  Transmission Date: 20140127
  Serious: No
  Sender: FDA-Public Use
  Company Number: US-ABBOTT-12P-163-0923360-00

PATIENT
  Age: 47 Year
  Sex: Female

DRUGS (7)
  1. HUMIRA 40 MG/0.8 ML PEN [Suspect]
     Indication: CROHN^S DISEASE
     Dosage: ONE TIME LOADING DOSE
     Dates: start: 20120327, end: 20120327
  2. HUMIRA 40 MG/0.8 ML PEN [Suspect]
  3. PREDNISONE [Concomitant]
     Indication: PRODUCT USED FOR UNKNOWN INDICATION
     Dosage: DAILY
  4. LOXITANE [Concomitant]
     Indication: DEPRESSION
     Dosage: AT BEDTIME
  5. DEPAKOTE [Concomitant]
     Indication: DEPRESSION
  6. MULTIVITAMIN [Concomitant]
     Indication: PRODUCT USED FOR UNKNOWN INDICATION
  7. IRON [Concomitant]
     Indication: PRODUCT USED FOR UNKNOWN INDICATION
     Dosage: 2 TABLETS

REACTIONS (15)
  - Anal fistula [Not Recovered/Not Resolved]
  - Local swelling [Not Recovered/Not Resolved]
  - Contusion [Not Recovered/Not Resolved]
  - Muscle fatigue [Recovering/Resolving]
  - Sensation of heaviness [Recovering/Resolving]
  - Rectal haemorrhage [Not Recovered/Not Resolved]
  - Pain in extremity [Recovering/Resolving]
  - Injection site pain [Recovering/Resolving]
  - Injection site pain [Recovering/Resolving]
  - Injection site pain [Recovering/Resolving]
  - Injection site pain [Recovering/Resolving]
  - Injection site pain [Recovered/Resolved]
  - Injection site bruising [Recovered/Resolved]
  - Injection site bruising [Recovered/Resolved]
  - Injection site bruising [Recovered/Resolved]
